FAERS Safety Report 6329682-4 (Version None)
Quarter: 2009Q3

REPORT INFORMATION
  Report Type: 
  Country: None (occurrence: None)
  Receive Date: 20090826
  Receipt Date: 20090818
  Transmission Date: 20100115
  Serious: Yes (Hospitalization)
  Sender: FDA-Public Use
  Company Number: US-B.I. PHARMACEUTICALS,INC./RIDGEFIELD-2009-BP-09748BP

PATIENT
  Age: 69 Year
  Sex: Male
  Weight: 81.1 kg

DRUGS (16)
  1. CLONIDINE HCL [Suspect]
  2. FLOMAX [Suspect]
  3. MICARDIS [Suspect]
  4. SUNITINIB MALATE; PLACEBO (SUNITINIB MALATE;PLACEBO) [Suspect]
     Indication: RENAL CELL CARCINOMA
     Route: 048
     Dates: start: 20061213
  5. COZAAR [Suspect]
  6. LASIX [Suspect]
  7. TOPROL-XL [Suspect]
  8. AMBIEN [Concomitant]
  9. ETANERCEPT (ETANERCEPT) [Concomitant]
  10. GLIPIZIDE [Concomitant]
  11. HYDROCODONE (HYDROCODONE) [Concomitant]
  12. LEXAPRO (ESCITALOPRIM) [Concomitant]
  13. LIPITOR [Concomitant]
  14. METFORMIN HCL [Concomitant]
  15. NEXIUM [Concomitant]
  16. PREDNISONE TAB [Concomitant]

REACTIONS (8)
  - ASTHENIA [None]
  - BODY TEMPERATURE DECREASED [None]
  - FATIGUE [None]
  - HEADACHE [None]
  - HYPERTENSION [None]
  - HYPOTENSION [None]
  - LABILE HYPERTENSION [None]
  - MUCOSAL INFLAMMATION [None]
